FAERS Safety Report 5092404-1 (Version None)
Quarter: 2006Q3

REPORT INFORMATION
  Report Type: 
  Country: None (occurrence: None)
  Receive Date: 20060825
  Receipt Date: 20060821
  Transmission Date: 20061208
  Serious: Yes (Other)
  Sender: FDA-Public Use
  Company Number: 2006090436

PATIENT
  Age: 28 Year
  Sex: Male

DRUGS (1)
  1. DEXTROMETHORPHAN HYDROBROMIDE [Suspect]
     Dosage: ORAL
     Route: 048

REACTIONS (17)
  - ABNORMAL BEHAVIOUR [None]
  - COORDINATION ABNORMAL [None]
  - DEPRESSED LEVEL OF CONSCIOUSNESS [None]
  - DISORIENTATION [None]
  - DISTURBANCE IN ATTENTION [None]
  - DIZZINESS POSTURAL [None]
  - FATIGUE [None]
  - FEELING DRUNK [None]
  - FLUSHING [None]
  - HEADACHE [None]
  - MENTAL IMPAIRMENT [None]
  - NYSTAGMUS [None]
  - OVERDOSE [None]
  - POISONING [None]
  - PSYCHOMOTOR RETARDATION [None]
  - SOMNOLENCE [None]
  - STUPOR [None]
